FAERS Safety Report 4838330-1 (Version None)
Quarter: 2005Q4

REPORT INFORMATION
  Report Type: 
  Country: None (occurrence: None)
  Receive Date: 20051123
  Receipt Date: 20051114
  Transmission Date: 20060501
  Serious: Yes (Death)
  Sender: FDA-Public Use
  Company Number: FABR-11309

PATIENT
  Age: 66 Year
  Sex: Male
  Weight: 57 kg

DRUGS (1)
  1. FABRAZYME [Suspect]
     Indication: FABRY'S DISEASE
     Dosage: 55 MG Q2WKS IV
     Dates: start: 20041221, end: 20050715

REACTIONS (1)
  - CARDIAC FAILURE [None]
